FAERS Safety Report 7030447-9 (Version None)
Quarter: 2010Q4

REPORT INFORMATION
  Report Type: 
  Country: None (occurrence: None)
  Receive Date: 20101006
  Receipt Date: 20100924
  Transmission Date: 20110411
  Serious: Yes (Other)
  Sender: FDA-Public Use
  Company Number: NO-SANOFI-AVENTIS-2010SA052456

PATIENT
  Age: 80 Year
  Sex: Female

DRUGS (10)
  1. PLAVIX [Suspect]
     Indication: PRODUCT USED FOR UNKNOWN INDICATION
     Route: 048
     Dates: start: 20100201
  2. AMLODIPINE [Interacting]
     Indication: HYPERTENSION
     Route: 048
  3. ALBYL [Interacting]
     Indication: PROPHYLAXIS
     Route: 048
  4. NITROMEX [Concomitant]
     Indication: ANGINA PECTORIS
     Dosage: 0.5 MG WHEN NEEDED
     Route: 065
  5. ATORVASTATIN [Concomitant]
     Route: 065
  6. METOPROLOL SUCCINATE [Concomitant]
     Route: 065
  7. MONOKET [Concomitant]
     Indication: ANGINA PECTORIS
     Route: 065
  8. CALCIGRAN [Concomitant]
     Indication: PRODUCT USED FOR UNKNOWN INDICATION
     Dosage: DOSE:1 UNIT(S)
  9. SAROTEX [Concomitant]
     Indication: SLEEP DISORDER THERAPY
     Dosage: 1-3 TABLETS AT NIGHT AS NEEDED
     Route: 065
  10. ZANTAC [Concomitant]
     Dosage: 1-2 TABLETS (NOS)

REACTIONS (4)
  - ARTERIAL DISORDER [None]
  - DRUG INTERACTION [None]
  - GINGIVAL BLEEDING [None]
  - MYOCARDIAL INFARCTION [None]
